FAERS Safety Report 8104214-9 (Version None)
Quarter: 2012Q1

REPORT INFORMATION
  Report Type: 
  Country: None (occurrence: None)
  Receive Date: 20120201
  Receipt Date: 20120127
  Transmission Date: 20120608
  Serious: Yes (Other)
  Sender: FDA-Public Use
  Company Number: JP-PFIZER INC-2012016078

PATIENT
  Age: 95 Year
  Sex: Female

DRUGS (5)
  1. ALPRAZOLAM [Suspect]
     Indication: ANXIETY
     Dosage: 1.2 MG PER DAY
     Route: 048
  2. ASPIRIN [Concomitant]
     Indication: THROMBOSIS PROPHYLAXIS
     Dosage: 100 MG, DAILY
     Route: 048
  3. LASIX [Concomitant]
     Indication: POLYURIA
     Dosage: 20 MG, DAILY
     Route: 048
  4. SG COMBINATION GRANULES [Suspect]
     Indication: HEADACHE
     Dosage: 1 G, AS NEEDED
     Route: 048
     Dates: start: 20110201
  5. OMEPRAZOLE [Concomitant]
     Indication: GASTROOESOPHAGEAL REFLUX DISEASE
     Dosage: 20 MG, DAILY
     Route: 048

REACTIONS (2)
  - DELIRIUM [None]
  - HEADACHE [None]
